FAERS Safety Report 24331824 (Version 1)
Quarter: 2024Q3

REPORT INFORMATION
  Report Type: Report from Study
  Country: CA (occurrence: CA)
  Receive Date: 20240918
  Receipt Date: 20240918
  Transmission Date: 20241017
  Serious: Yes (Hospitalization)
  Sender: TAKEDA
  Company Number: CA-TAKEDA-2024TUS009675

PATIENT
  Age: 64 Year
  Sex: Female
  Weight: 81.6 kg

DRUGS (33)
  1. VEDOLIZUMAB [Suspect]
     Active Substance: VEDOLIZUMAB
     Indication: Crohn^s disease
     Dosage: 300 MILLIGRAM
     Route: 042
     Dates: start: 20210430
  2. VEDOLIZUMAB [Suspect]
     Active Substance: VEDOLIZUMAB
     Dosage: 300 MILLIGRAM, Q4WEEKS
     Route: 042
     Dates: start: 20220713
  3. VEDOLIZUMAB [Suspect]
     Active Substance: VEDOLIZUMAB
     Dosage: 300 MILLIGRAM, Q4WEEKS
     Route: 042
  4. VEDOLIZUMAB [Suspect]
     Active Substance: VEDOLIZUMAB
     Dosage: 300 MILLIGRAM, Q4WEEKS
     Route: 042
     Dates: end: 20240813
  5. PERCOCET [Concomitant]
     Active Substance: ACETAMINOPHEN\OXYCODONE HYDROCHLORIDE
     Dosage: UNK
  6. ACETAMINOPHEN [Concomitant]
     Active Substance: ACETAMINOPHEN
     Dosage: UNK
  7. AMLODIPINE AND ATORVASTATIN [Concomitant]
     Active Substance: AMLODIPINE BESYLATE\ATORVASTATIN CALCIUM
     Dosage: UNK UNK, QD
  8. BACLOFEN [Concomitant]
     Active Substance: BACLOFEN
     Indication: Pain
     Dosage: 10 MILLIGRAM, TID
  9. BECLOMETHASONE [Concomitant]
     Active Substance: BECLOMETHASONE
     Dosage: UNK
  10. PEPTO-BISMOL [Concomitant]
     Active Substance: BISMUTH SUBSALICYLATE
     Dosage: UNK
  11. SYMBICORT [Concomitant]
     Active Substance: BUDESONIDE\FORMOTEROL FUMARATE DIHYDRATE
     Dosage: UNK
  12. BUPROPION [Concomitant]
     Active Substance: BUPROPION
     Dosage: 300 MILLIGRAM, QD
  13. CHOLECALCIFEROL [Concomitant]
     Active Substance: CHOLECALCIFEROL
     Dosage: 2000 INTERNATIONAL UNIT, QD
  14. OMNARIS [Concomitant]
     Active Substance: CICLESONIDE
     Dosage: 50 MICROGRAM, BID
  15. PROCTOSEDYL [Concomitant]
     Active Substance: DIBUCAINE HYDROCHLORIDE\HYDROCORTISONE
     Indication: Anorectal disorder
     Dosage: UNK
     Route: 054
  16. VITAMIN B12 [Concomitant]
     Active Substance: CYANOCOBALAMIN
     Dosage: UNK
  17. DULOXETINE [Concomitant]
     Active Substance: DULOXETINE
     Dosage: 60 MILLIGRAM, QD
  18. IPRATROPIUM [Concomitant]
     Active Substance: IPRATROPIUM
     Dosage: UNK
  19. LEMBOREXANT [Concomitant]
     Active Substance: LEMBOREXANT
     Dosage: 5 MILLIGRAM, QD
  20. LEVOTHYROXINE [Concomitant]
     Active Substance: LEVOTHYROXINE\LEVOTHYROXINE SODIUM
     Dosage: 50 MICROGRAM, QD
  21. LOPERAMIDE [Concomitant]
     Active Substance: LOPERAMIDE
     Dosage: UNK UNK, Q4HR
  22. LORAZEPAM [Concomitant]
     Active Substance: LORAZEPAM
     Dosage: 1 MILLIGRAM
  23. MELATONIN [Concomitant]
     Active Substance: MELATONIN
     Dosage: UNK
  24. ONDANSETRON [Concomitant]
     Active Substance: ONDANSETRON
     Dosage: 4 MILLIGRAM, Q8HR
  25. PANCRELIPASE [Concomitant]
     Active Substance: PANCRELIPASE\PANCRELIPASE AMYLASE\PANCRELIPASE LIPASE\PANCRELIPASE PROTEASE
     Dosage: UNK UNK, TID
  26. PANTOPRAZOLE [Concomitant]
     Active Substance: PANTOPRAZOLE
     Dosage: 40 MILLIGRAM, QD
  27. PERINDOPRIL [Concomitant]
     Active Substance: PERINDOPRIL
     Dosage: 2 MILLIGRAM, QD
  28. POLYETHYLENE GLYCOL [Concomitant]
     Active Substance: POLYETHYLENE GLYCOL
     Dosage: UNK
  29. PREGABALIN [Concomitant]
     Active Substance: PREGABALIN
     Dosage: 75 MILLIGRAM, QD
  30. VENTOLIN [Concomitant]
     Active Substance: ALBUTEROL SULFATE
     Dosage: UNK
  31. OZEMPIC [Concomitant]
     Active Substance: SEMAGLUTIDE
     Dosage: UNK
  32. SPIRIVA [Concomitant]
     Active Substance: TIOTROPIUM BROMIDE MONOHYDRATE
     Dosage: 18 MICROGRAM, QD
  33. TRAZODONE [Concomitant]
     Active Substance: TRAZODONE HYDROCHLORIDE
     Dosage: UNK

REACTIONS (9)
  - Hospitalisation [Unknown]
  - Drug ineffective [Not Recovered/Not Resolved]
  - Off label use [Unknown]
  - Asthenia [Unknown]
  - Dehydration [Unknown]
  - Poor quality sleep [Unknown]
  - Fistula [Unknown]
  - Arthralgia [Unknown]
  - Fatigue [Unknown]

NARRATIVE: CASE EVENT DATE: 20220713
